FAERS Safety Report 4546205-0 (Version None)
Quarter: 2005Q1

REPORT INFORMATION
  Report Type: 
  Country: None (occurrence: None)
  Receive Date: 20050103
  Receipt Date: 20041221
  Transmission Date: 20050727
  Serious: Yes (Other)
  Sender: FDA-Public Use
  Company Number: 2004040669

PATIENT
  Age: 65 Year
  Sex: Male

DRUGS (3)
  1. VIAGRA [Suspect]
     Indication: ERECTILE DYSFUNCTION
     Dosage: (AS NECESSARY), ORAL
     Route: 048
     Dates: end: 20040101
  2. VALSARTAN (VALSARTAN) [Concomitant]
  3. WARFARIN SODIUM [Concomitant]

REACTIONS (4)
  - COLLAGEN DISORDER [None]
  - HAEMORRHAGE [None]
  - HAEMORRHAGE SUBCUTANEOUS [None]
  - THROMBOCYTOPENIA [None]
